FAERS Safety Report 19020971 (Version 1)
Quarter: 2021Q1

REPORT INFORMATION
  Report Type: Spontaneous
  Country: HU (occurrence: HU)
  Receive Date: 20210317
  Receipt Date: 20210317
  Transmission Date: 20210420
  Serious: Yes (Hospitalization, Other)
  Sender: FDA-Public Use
  Company Number: NVSC2021HU058671

PATIENT
  Age: 69 Year
  Sex: Male

DRUGS (26)
  1. ATORVASTATIN CALCIUM. [Suspect]
     Active Substance: ATORVASTATIN CALCIUM
     Indication: PRODUCT USED FOR UNKNOWN INDICATION
     Dosage: 20 MG
     Route: 065
  2. FUROSEMIDE. [Concomitant]
     Active Substance: FUROSEMIDE
     Dosage: 1 TABLET
     Route: 065
  3. INSPRA [Concomitant]
     Active Substance: EPLERENONE
     Dosage: UNK
     Route: 065
  4. PANTOPRAZOLE [Suspect]
     Active Substance: PANTOPRAZOLE
     Indication: PRODUCT USED FOR UNKNOWN INDICATION
     Dosage: 40 MG
     Route: 065
  5. FUROSEMIDE. [Concomitant]
     Active Substance: FUROSEMIDE
     Dosage: UNK
     Route: 065
  6. BERODUAL [Concomitant]
     Active Substance: FENOTEROL HYDROBROMIDE\IPRATROPIUM BROMIDE
     Indication: PRODUCT USED FOR UNKNOWN INDICATION
     Route: 065
  7. INSPRA [Concomitant]
     Active Substance: EPLERENONE
     Dosage: 12.5 MG
     Route: 065
  8. RAMIPRIL. [Suspect]
     Active Substance: RAMIPRIL
     Indication: PRODUCT USED FOR UNKNOWN INDICATION
     Dosage: 2.5 MG, BID
     Route: 065
  9. FUROSEMIDE. [Concomitant]
     Active Substance: FUROSEMIDE
     Dosage: DOUBLING THE DOSE
     Route: 065
  10. SPIOLTO RESPIMAT [Concomitant]
     Active Substance: OLODATEROL HYDROCHLORIDE\TIOTROPIUM BROMIDE MONOHYDRATE
     Indication: PRODUCT USED FOR UNKNOWN INDICATION
     Dosage: UNK
     Route: 065
  11. PROSTAMOL [Concomitant]
     Indication: PRODUCT USED FOR UNKNOWN INDICATION
     Route: 065
  12. INSPRA [Concomitant]
     Active Substance: EPLERENONE
     Dosage: TEMPORARY DOSE REDUCTION
     Route: 065
  13. BISOPROLOL FUMARATE. [Suspect]
     Active Substance: BISOPROLOL FUMARATE
     Indication: PRODUCT USED FOR UNKNOWN INDICATION
     Dosage: 3.75 MG, BID
     Route: 065
  14. FUROSEMIDE. [Concomitant]
     Active Substance: FUROSEMIDE
     Dosage: UNK
     Route: 042
  15. INSPRA [Concomitant]
     Active Substance: EPLERENONE
     Dosage: UNK
     Route: 065
  16. EMPAGLIFLOZIN [Concomitant]
     Active Substance: EMPAGLIFLOZIN
     Dosage: 10 MG
     Route: 065
  17. DABIGATRAN [Concomitant]
     Active Substance: DABIGATRAN
     Indication: PRODUCT USED FOR UNKNOWN INDICATION
     Route: 065
  18. CLOPIDOGREL [Concomitant]
     Active Substance: CLOPIDOGREL BISULFATE
     Indication: PRODUCT USED FOR UNKNOWN INDICATION
     Route: 065
  19. FUROSEMIDE. [Concomitant]
     Active Substance: FUROSEMIDE
     Indication: PRODUCT USED FOR UNKNOWN INDICATION
     Dosage: 1 TABLET
     Route: 065
  20. INSPRA [Concomitant]
     Active Substance: EPLERENONE
     Dosage: TEMPORARY DOSE REDUCTION
     Route: 065
  21. INSPRA [Concomitant]
     Active Substance: EPLERENONE
     Indication: PRODUCT USED FOR UNKNOWN INDICATION
     Dosage: 12.5 MG
     Route: 065
  22. EMPAGLIFLOZIN [Concomitant]
     Active Substance: EMPAGLIFLOZIN
     Indication: PRODUCT USED FOR UNKNOWN INDICATION
     Dosage: 10 MG
     Route: 065
  23. ASA [Concomitant]
     Active Substance: ASPIRIN
     Indication: PRODUCT USED FOR UNKNOWN INDICATION
     Route: 065
  24. EPLERENONE. [Concomitant]
     Active Substance: EPLERENONE
     Indication: PRODUCT USED FOR UNKNOWN INDICATION
     Route: 065
  25. EMPAGLIFLOZIN [Concomitant]
     Active Substance: EMPAGLIFLOZIN
     Dosage: 25 MG
     Route: 065
  26. EMPAGLIFLOZIN [Concomitant]
     Active Substance: EMPAGLIFLOZIN
     Dosage: 25 MG
     Route: 065

REACTIONS (19)
  - Pneumonia [Unknown]
  - Iron deficiency [Unknown]
  - Cardiac failure acute [Unknown]
  - Loss of personal independence in daily activities [Unknown]
  - Blood potassium increased [Unknown]
  - Coronary artery stenosis [Unknown]
  - Carotid artery stenosis [Unknown]
  - Electrocardiogram QRS complex prolonged [Unknown]
  - Ejection fraction decreased [Unknown]
  - Prostatitis [Unknown]
  - Weight decreased [Unknown]
  - Left ventricular dysfunction [Unknown]
  - Ischaemic stroke [Unknown]
  - Hypotension [Unknown]
  - Brain natriuretic peptide decreased [Unknown]
  - Musculoskeletal discomfort [Unknown]
  - Fluid retention [Unknown]
  - Dyspnoea paroxysmal nocturnal [Unknown]
  - Cystitis [Unknown]

NARRATIVE: CASE EVENT DATE: 2015
